FAERS Safety Report 7589167-4 (Version None)
Quarter: 2011Q3

REPORT INFORMATION
  Report Type: 
  Country: None (occurrence: None)
  Receive Date: 20110705
  Receipt Date: 20110627
  Transmission Date: 20111222
  Serious: Yes (Other)
  Sender: FDA-Public Use
  Company Number: US-JNJFOC-20110303675

PATIENT
  Sex: Male

DRUGS (3)
  1. LEVAQUIN [Suspect]
     Indication: ANTIBIOTIC RESISTANT STAPHYLOCOCCUS TEST
     Route: 048
     Dates: start: 20080112, end: 20080126
  2. LEVAQUIN [Suspect]
     Indication: PRODUCT USED FOR UNKNOWN INDICATION
     Route: 048
  3. LEVAQUIN [Suspect]
     Indication: SUBCUTANEOUS ABSCESS
     Route: 048
     Dates: start: 20080112, end: 20080126

REACTIONS (2)
  - MUSCLE RUPTURE [None]
  - ROTATOR CUFF SYNDROME [None]
